FAERS Safety Report 9340942 (Version 2)
Quarter: 2013Q2

REPORT INFORMATION
  Report Type: Spontaneous
  Country: JP (occurrence: JP)
  Receive Date: 20130610
  Receipt Date: 20130626
  Transmission Date: 20140414
  Serious: Yes (Life-Threatening, Hospitalization)
  Sender: FDA-Public Use
  Company Number: JP-B.I. PHARMACEUTICALS,INC./RIDGEFIELD-2013-BI-16297NB

PATIENT
  Age: 51 Year
  Sex: Male

DRUGS (1)
  1. PRAZAXA [Suspect]
     Dosage: 75 MG
     Route: 048
     Dates: start: 20120830, end: 20120904

REACTIONS (3)
  - Acute myocardial infarction [Recovered/Resolved]
  - Ventricular fibrillation [Recovered/Resolved]
  - Cardio-respiratory arrest [Recovered/Resolved]
